FAERS Safety Report 7809734-X (Version None)
Quarter: 2011Q4

REPORT INFORMATION
  Report Type: 
  Country: None (occurrence: None)
  Receive Date: 20111012
  Receipt Date: 20111006
  Transmission Date: 20120403
  Serious: Yes (Hospitalization, Other)
  Sender: FDA-Public Use
  Company Number: CY-ROXANE LABORATORIES, INC.-2011-RO-01424RO

PATIENT
  Age: 74 Year
  Sex: Female

DRUGS (8)
  1. GENTAMICIN [Suspect]
     Indication: MICROCOCCUS INFECTION
  2. RIFAMPIN [Suspect]
     Indication: MICROCOCCUS INFECTION
  3. VANCOMYCIN [Suspect]
     Indication: MICROCOCCUS INFECTION
  4. GENTAMICIN [Suspect]
     Indication: ENDOCARDITIS
     Dosage: 240 MG
     Route: 042
  5. VANCOMYCIN [Suspect]
     Indication: ENDOCARDITIS
     Dosage: 2 G
  6. RIFAMPIN [Suspect]
     Indication: ENDOCARDITIS
     Dosage: 600 MG
  7. METHOTREXATE [Suspect]
     Indication: TEMPORAL ARTERITIS
     Dosage: 15 MG
  8. TAMOXIFEN CITRATE [Suspect]
     Indication: BREAST CANCER

REACTIONS (5)
  - ENDOCARDITIS [None]
  - MICROCOCCUS INFECTION [None]
  - RENAL FAILURE ACUTE [None]
  - EMBOLISM [None]
  - SEPSIS [None]
